FAERS Safety Report 5855767-2 (Version None)
Quarter: 2008Q3

REPORT INFORMATION
  Report Type: 
  Country: None (occurrence: None)
  Receive Date: 20080825
  Receipt Date: 20080815
  Transmission Date: 20090109
  Serious: Yes (Other)
  Sender: FDA-Public Use
  Company Number: US-BRISTOL-MYERS SQUIBB COMPANY-14304604

PATIENT
  Age: 26 Year
  Sex: Female

DRUGS (2)
  1. ABILIFY [Suspect]
     Indication: POST-TRAUMATIC STRESS DISORDER
     Dates: start: 20080716
  2. LUVOX [Interacting]

REACTIONS (3)
  - BLINDNESS TRANSIENT [None]
  - DRUG INTERACTION [None]
  - ORTHOSTATIC HYPOTENSION [None]
